FAERS Safety Report 7331530-0 (Version None)
Quarter: 2011Q1

REPORT INFORMATION
  Report Type: 
  Country: None (occurrence: None)
  Receive Date: 20110228
  Receipt Date: 20110228
  Transmission Date: 20110831
  Serious: Yes (Other)
  Sender: FDA-Public Use
  Company Number: None

PATIENT
  Sex: Female
  Weight: 41.7309 kg

DRUGS (1)
  1. CHANTIX [Suspect]
     Indication: EX-TOBACCO USER
     Dosage: 0.5MG ONE DOSE PO
     Route: 048
     Dates: start: 20110130, end: 20110130

REACTIONS (5)
  - DYSTONIA [None]
  - ANXIETY [None]
  - HYPEREXPLEXIA [None]
  - MUSCLE TWITCHING [None]
  - TACHYCARDIA [None]
